FAERS Safety Report 6729679-6 (Version None)
Quarter: 2010Q2

REPORT INFORMATION
  Report Type: 
  Country: None (occurrence: None)
  Receive Date: 20100518
  Receipt Date: 20100505
  Transmission Date: 20101027
  Serious: Yes (Other)
  Sender: FDA-Public Use
  Company Number: US-SOLVAY-00210002849

PATIENT
  Age: 35 Year
  Sex: Male
  Weight: 81.818 kg

DRUGS (2)
  1. MANY MEDICATIONS FOR SEIZURES [Concomitant]
     Indication: CONVULSION
     Dosage: DAILY DOSE:  UNKNOWN
     Route: 048
  2. ANDROGEL [Suspect]
     Indication: OSTEOPOROSIS
     Dosage: DAILY DOSE: 5 GRAM(S), VIA PUMP
     Route: 062
     Dates: start: 20091101

REACTIONS (2)
  - BLOOD TESTOSTERONE DECREASED [None]
  - CONVULSION [None]
